FAERS Safety Report 20115623 (Version 1)
Quarter: 2021Q4

REPORT INFORMATION
  Report Type: Spontaneous
  Country: US (occurrence: US)
  Receive Date: 20211126
  Receipt Date: 20211126
  Transmission Date: 20220303
  Serious: No
  Sender: FDA-Public Use
  Company Number: US-JNJFOC-20211121342

PATIENT
  Age: 77 Year
  Sex: Male

DRUGS (5)
  1. TYLENOL [Suspect]
     Active Substance: ACETAMINOPHEN
     Indication: Pain in extremity
     Route: 065
  2. TYLENOL [Suspect]
     Active Substance: ACETAMINOPHEN
     Indication: Muscle twitching
  3. COVID-19 VACCINE [Concomitant]
     Indication: Product used for unknown indication
     Dosage: DOSE 1
     Route: 065
     Dates: start: 20210707
  4. COVID-19 VACCINE [Concomitant]
     Dosage: DOSE 2
     Route: 065
     Dates: start: 20210728
  5. ADVIL [Concomitant]
     Active Substance: IBUPROFEN
     Indication: Pain in extremity
     Route: 065

REACTIONS (1)
  - Product use in unapproved indication [Unknown]
